FAERS Safety Report 13805430 (Version 1)
Quarter: 2017Q3

REPORT INFORMATION
  Report Type: Spontaneous
  Country: HK (occurrence: US)
  Receive Date: 20170728
  Receipt Date: 20170728
  Transmission Date: 20171127
  Serious: Yes (Hospitalization)
  Sender: FDA-Public Use
  Company Number: None

PATIENT
  Age: 42 Year
  Sex: Male
  Weight: 91.5 kg

DRUGS (4)
  1. LOSARTAN POTASSIUM. [Concomitant]
     Active Substance: LOSARTAN POTASSIUM
  2. MEFENAMIC ACID (POSTAN) [Concomitant]
  3. CISPLATIN. [Suspect]
     Active Substance: CISPLATIN
     Dates: end: 20170531
  4. METFORMIN HCL [Concomitant]
     Active Substance: METFORMIN HYDROCHLORIDE

REACTIONS (3)
  - Acute kidney injury [None]
  - Mucosal inflammation [None]
  - Hypophagia [None]

NARRATIVE: CASE EVENT DATE: 20170629
